FAERS Safety Report 8737419 (Version 4)
Quarter: 2012Q4

REPORT INFORMATION
  Report Type: 
  Country: US (occurrence: US)
  Receive Date: 20120822
  Receipt Date: 20121017
  Transmission Date: 20130627
  Serious: No
  Sender: FDA-Public Use
  Company Number: US-PFIZER INC-2012200671

PATIENT
  Age: 56 Year
  Sex: Female
  Weight: 58.05 kg

DRUGS (2)
  1. OXYCODONE HYDROCHLORIDE [Suspect]
     Dosage: ^510^
  2. FENTANYL [Suspect]
     Indication: BACK PAIN
     Dosage: 50 ugm, UNK
     Route: 062
     Dates: start: 20120831, end: 20120901

REACTIONS (2)
  - Drug hypersensitivity [Unknown]
  - Nausea [Recovered/Resolved]
